FAERS Safety Report 5376640-2 (Version None)
Quarter: 2007Q2

REPORT INFORMATION
  Report Type: 
  Country: None (occurrence: None)
  Receive Date: 20070629
  Receipt Date: 20070618
  Transmission Date: 20071010
  Serious: Yes (Other)
  Sender: FDA-Public Use
  Company Number: GXKR2007DEC05214

PATIENT
  Age: 42 Year

DRUGS (2)
  1. PARACETAMOL HEXAL (NGX)  (PARACETAMOL) TABLET, 500MG [Suspect]
     Indication: TOOTHACHE
     Dosage: 3000-6000 MG/DAILY, ORAL
     Route: 048
  2. CARBAMAZEPINE [Concomitant]

REACTIONS (4)
  - DRUG ABUSER [None]
  - GAMMA-GLUTAMYLTRANSFERASE INCREASED [None]
  - HEPATIC ENZYME INCREASED [None]
  - INTENTIONAL OVERDOSE [None]
